FAERS Safety Report 9515573 (Version 2)
Quarter: 2013Q3

REPORT INFORMATION
  Report Type: Spontaneous
  Country: GB (occurrence: None)
  Receive Date: 20130909
  Receipt Date: 20130911
  Transmission Date: 20140515
  Serious: Yes (Hospitalization, Other)
  Sender: FDA-Public Use
  Company Number: AUR-APL-2013-07345

PATIENT
  Age: 41 Year
  Sex: Female

DRUGS (3)
  1. CIPROFLOXACIN [Suspect]
     Indication: LOWER RESPIRATORY TRACT INFECTION
     Dosage: 1000 MG, (500 MG, 2 IN 1 D) , ORAL
     Route: 048
     Dates: start: 20120928, end: 20121002
  2. EVOREL (ESTRADIOL) [Concomitant]
  3. OMEPRAZOLE (OMEPRAZOLE) [Concomitant]

REACTIONS (9)
  - Dyspnoea [None]
  - Cyanosis [None]
  - Chest pain [None]
  - Pyrexia [None]
  - Productive cough [None]
  - Treatment failure [None]
  - Lung consolidation [None]
  - White blood cell count increased [None]
  - C-reactive protein increased [None]
